FAERS Safety Report 9201635 (Version 1)
Quarter: 2013Q1

REPORT INFORMATION
  Report Type: Spontaneous
  Country: US (occurrence: None)
  Receive Date: 20130327
  Receipt Date: 20130327
  Transmission Date: 20140127
  Serious: Yes (Other)
  Sender: FDA-Public Use
  Company Number: MERCK1210USA000071

PATIENT
  Age: 58 Year
  Sex: Male

DRUGS (2)
  1. BCG VACCINE [Suspect]
  2. INTRONA [Concomitant]

REACTIONS (6)
  - Penile pain [None]
  - Dysuria [None]
  - Drug dose omission [None]
  - No adverse event [None]
  - Product packaging issue [None]
  - Product quality issue [None]
